FAERS Safety Report 17767748 (Version 3)
Quarter: 2020Q2

REPORT INFORMATION
  Report Type: Spontaneous
  Country: US (occurrence: US)
  Receive Date: 20200511
  Receipt Date: 20200518
  Transmission Date: 20200714
  Serious: Yes (Other)
  Sender: FDA-Public Use
  Company Number: US-BAYER-2020-072587

PATIENT
  Age: 64 Year
  Sex: Female

DRUGS (3)
  1. ADEMPAS [Suspect]
     Active Substance: RIOCIGUAT
     Indication: PRODUCT USED FOR UNKNOWN INDICATION
     Dosage: UNK
     Dates: end: 20200305
  2. POTASSIUM [Concomitant]
     Active Substance: POTASSIUM
  3. AMBRISENTAN [Suspect]
     Active Substance: AMBRISENTAN
     Indication: PRODUCT USED FOR UNKNOWN INDICATION
     Dosage: 5 MG, QD
     Route: 048
     Dates: start: 20171109

REACTIONS (35)
  - Influenza [Unknown]
  - Malaise [Not Recovered/Not Resolved]
  - Lacrimation increased [Unknown]
  - Nasal congestion [Not Recovered/Not Resolved]
  - Pharyngeal erythema [Not Recovered/Not Resolved]
  - Blood pressure decreased [Unknown]
  - Malaise [Unknown]
  - Dizziness [Unknown]
  - Productive cough [Not Recovered/Not Resolved]
  - Upper respiratory tract infection [Unknown]
  - Hypotension [Not Recovered/Not Resolved]
  - Nausea [Unknown]
  - Dysphonia [Not Recovered/Not Resolved]
  - Pruritus [Not Recovered/Not Resolved]
  - Feeling hot [Not Recovered/Not Resolved]
  - Seasonal allergy [Not Recovered/Not Resolved]
  - Ear infection [Unknown]
  - Rash [Not Recovered/Not Resolved]
  - Cough [Not Recovered/Not Resolved]
  - Respiratory tract congestion [Unknown]
  - Pyrexia [Not Recovered/Not Resolved]
  - Sputum discoloured [Not Recovered/Not Resolved]
  - Heart rate increased [Recovered/Resolved]
  - Blood pressure increased [Recovered/Resolved]
  - Ageusia [Unknown]
  - Fungal infection [Recovered/Resolved]
  - Lymphadenopathy [Unknown]
  - Headache [Unknown]
  - Bronchial irritation [Not Recovered/Not Resolved]
  - Cardiac disorder [Unknown]
  - Nasopharyngitis [Unknown]
  - Pyrexia [Unknown]
  - Rhinorrhoea [Not Recovered/Not Resolved]
  - Dyspnoea [Recovered/Resolved]
  - Dyspnoea [Not Recovered/Not Resolved]

NARRATIVE: CASE EVENT DATE: 20200103
